FAERS Safety Report 5636859-X (Version None)
Quarter: 2008Q1

REPORT INFORMATION
  Report Type: 
  Country: None (occurrence: None)
  Receive Date: 20080219
  Receipt Date: 20080201
  Transmission Date: 20080703
  Serious: Yes (Hospitalization)
  Sender: FDA-Public Use
  Company Number: B0505044A

PATIENT
  Sex: 0

DRUGS (1)
  1. SALMETEROL XINAFOATE (FORMULATION UNKNOWN) (GENERIC) (SALMETEROL XINAF [Suspect]

REACTIONS (2)
  - STEVENS-JOHNSON SYNDROME [None]
  - TOXIC EPIDERMAL NECROLYSIS [None]
